FAERS Safety Report 22540496 (Version 1)
Quarter: 2023Q2

REPORT INFORMATION
  Report Type: Spontaneous
  Country: US (occurrence: US)
  Receive Date: 20230609
  Receipt Date: 20230609
  Transmission Date: 20230722
  Serious: Yes (Life-Threatening, Hospitalization, Other)
  Sender: FDA-Public Use
  Company Number: US-Shilpa Medicare Limited-SML-US-2023-00654

PATIENT
  Age: 68 Year
  Sex: Female

DRUGS (2)
  1. CAPECITABINE [Suspect]
     Active Substance: CAPECITABINE
     Indication: Pancreatic neuroendocrine tumour
     Dosage: 1400MG/M2 DIVIDED TWICE DAILY
  2. TEMOZOLOMIDE [Concomitant]
     Active Substance: TEMOZOLOMIDE
     Indication: Pancreatic neuroendocrine tumour

REACTIONS (3)
  - Renal salt-wasting syndrome [Recovered/Resolved]
  - Bartter^s syndrome [Recovered/Resolved]
  - Off label use [Unknown]
